FAERS Safety Report 21499959 (Version 3)
Quarter: 2022Q4

REPORT INFORMATION
  Report Type: Spontaneous
  Country: IN (occurrence: IN)
  Receive Date: 20221024
  Receipt Date: 20221101
  Transmission Date: 20230112
  Serious: Yes (Other)
  Sender: FDA-Public Use
  Company Number: IN-PFIZER INC-202201228688

PATIENT
  Age: 48 Year
  Sex: Male

DRUGS (1)
  1. METHOTREXATE SODIUM [Suspect]
     Active Substance: METHOTREXATE SODIUM
     Indication: Psoriasis
     Dosage: 60 MG CUMULATIVE DOSE

REACTIONS (6)
  - Toxicity to various agents [Recovered/Resolved]
  - Overdose [Recovered/Resolved]
  - Nephropathy toxic [Recovered/Resolved]
  - Psoriasis [Recovered/Resolved]
  - Mouth ulceration [Recovered/Resolved]
  - Haematotoxicity [Recovered/Resolved]
